FAERS Safety Report 4812473-0 (Version None)
Quarter: 2005Q4

REPORT INFORMATION
  Report Type: 
  Country: None (occurrence: None)
  Receive Date: 20051028
  Receipt Date: 20050203
  Transmission Date: 20060501
  Serious: No
  Sender: FDA-Public Use
  Company Number: US-GLAXOSMITHKLINE-A0543709A

PATIENT
  Sex: Female

DRUGS (17)
  1. ADVAIR DISKUS 100/50 [Suspect]
     Indication: ASTHMA
     Dosage: 1PUFF TWICE PER DAY
     Route: 055
     Dates: start: 20050125
  2. ATROVENT [Concomitant]
  3. LEVAQUIN [Concomitant]
  4. FLONASE [Concomitant]
  5. ALLEGRA [Concomitant]
  6. SYNTHROID [Concomitant]
  7. REMERON [Concomitant]
  8. CLONOPIN [Concomitant]
  9. LIPITOR [Concomitant]
  10. CELEBREX [Concomitant]
  11. LASIX [Concomitant]
  12. ESKALITH [Concomitant]
  13. ACTONEL [Concomitant]
  14. NEXIUM [Concomitant]
  15. LEXAPRO [Concomitant]
  16. TUSSIONEX [Concomitant]
  17. ALBUTEROL [Concomitant]

REACTIONS (1)
  - DRUG INEFFECTIVE [None]
